FAERS Safety Report 8031757-9 (Version None)
Quarter: 2012Q1

REPORT INFORMATION
  Report Type: 
  Country: None (occurrence: None)
  Receive Date: 20120109
  Receipt Date: 20120104
  Transmission Date: 20120608
  Serious: Yes (Hospitalization)
  Sender: FDA-Public Use
  Company Number: AU-SANOFI-AVENTIS-2012SA000609

PATIENT
  Sex: Male

DRUGS (4)
  1. NOVORAPID [Concomitant]
  2. LANTUS [Suspect]
     Route: 065
  3. MICARDIS [Concomitant]
  4. ACETAMINOPHEN [Concomitant]

REACTIONS (1)
  - PNEUMONIA [None]
